FAERS Safety Report 16406219 (Version 1)
Quarter: 2019Q2

REPORT INFORMATION
  Report Type: Spontaneous
  Country: US (occurrence: US)
  Receive Date: 20190607
  Receipt Date: 20190607
  Transmission Date: 20190711
  Serious: No
  Sender: FDA-Public Use
  Company Number: US-ALLERGAN-1849725US

PATIENT
  Age: 60 Year
  Sex: Male

DRUGS (1)
  1. VIBERZI [Suspect]
     Active Substance: ELUXADOLINE
     Indication: BOWEL MOVEMENT IRREGULARITY
     Dosage: 100 MG, UNK
     Route: 048

REACTIONS (1)
  - Off label use [Unknown]
